FAERS Safety Report 22949038 (Version 4)
Quarter: 2024Q1

REPORT INFORMATION
  Report Type: Spontaneous
  Country: IT (occurrence: IT)
  Receive Date: 20230915
  Receipt Date: 20240113
  Transmission Date: 20240409
  Serious: Yes (Other)
  Sender: FDA-Public Use
  Company Number: IT-SANDOZ-SDZ2023IT020796

PATIENT
  Age: 16 Year
  Sex: Female

DRUGS (6)
  1. ADALIMUMAB [Suspect]
     Active Substance: ADALIMUMAB\ISOPROPYL ALCOHOL
     Indication: Chronic recurrent multifocal osteomyelitis
     Dosage: 40 MG, BIW (EVERY 2 WEEKS)
     Route: 058
  2. CANAKINUMAB [Suspect]
     Active Substance: CANAKINUMAB
     Indication: Chronic recurrent multifocal osteomyelitis
     Dosage: 4 MG/KG, Q4W
     Route: 058
  3. CANAKINUMAB [Suspect]
     Active Substance: CANAKINUMAB
     Dosage: 4 MG/KG EVERY 8 WEEKS
     Route: 065
  4. PREDNISONE ACETATE [Concomitant]
     Active Substance: PREDNISONE ACETATE
     Indication: Chronic recurrent multifocal osteomyelitis
     Dosage: 15 MG, QD
     Route: 065
  5. CLOBETASOL [Concomitant]
     Active Substance: CLOBETASOL
     Indication: Chronic recurrent multifocal osteomyelitis
     Dosage: UNK, BID
     Route: 061
  6. METHOTREXATE [Concomitant]
     Active Substance: METHOTREXATE
     Indication: Chronic recurrent multifocal osteomyelitis
     Dosage: 15 MG/M2, QW
     Route: 058

REACTIONS (4)
  - Pyoderma gangrenosum [Recovered/Resolved]
  - Condition aggravated [Recovered/Resolved]
  - Chronic recurrent multifocal osteomyelitis [Recovered/Resolved]
  - Off label use [Unknown]
